FAERS Safety Report 4709616-6 (Version None)
Quarter: 2005Q3

REPORT INFORMATION
  Report Type: 
  Country: None (occurrence: None)
  Receive Date: 20050707
  Receipt Date: 20050629
  Transmission Date: 20060218
  Serious: Yes (Other)
  Sender: FDA-Public Use
  Company Number: 215737

PATIENT
  Age: 54 Year
  Sex: Female

DRUGS (1)
  1. XOLAIR [Suspect]
     Dosage: 1/MONTH

REACTIONS (3)
  - ASTHMA [None]
  - BLOOD PRESSURE INCREASED [None]
  - HEART RATE INCREASED [None]
